FAERS Safety Report 24304024 (Version 1)
Quarter: 2024Q3

REPORT INFORMATION
  Report Type: Spontaneous
  Country: US (occurrence: None)
  Receive Date: 20240909
  Receipt Date: 20240909
  Transmission Date: 20241016
  Serious: Yes (Life-Threatening, Hospitalization, Disabling, Other)
  Sender: Public
  Company Number: None

PATIENT
  Age: 43 Year
  Sex: Male
  Weight: 109.8 kg

DRUGS (1)
  1. CANNABIDIOL\HERBALS\MUSCIMOL [Suspect]
     Active Substance: CANNABIDIOL\HERBALS\MUSCIMOL
     Dates: start: 20240907, end: 20240907

REACTIONS (3)
  - Hyperhidrosis [None]
  - Oxygen saturation decreased [None]
  - Confusional state [None]

NARRATIVE: CASE EVENT DATE: 20240907
